FAERS Safety Report 4355195-5 (Version None)
Quarter: 2004Q2

REPORT INFORMATION
  Report Type: 
  Country: None (occurrence: None)
  Receive Date: 20040510
  Receipt Date: 20040423
  Transmission Date: 20050107
  Serious: Yes (Other)
  Sender: FDA-Public Use
  Company Number: PHEH2004US04604

PATIENT
  Age: 80 Year
  Sex: Female

DRUGS (13)
  1. ZOMETA [Suspect]
     Indication: BREAST CANCER METASTATIC
     Dosage: 4 MG, QMO
     Dates: start: 20020617, end: 20040112
  2. EPOGEN [Concomitant]
  3. AREDIA [Suspect]
     Indication: BREAST CANCER METASTATIC
     Dosage: 90 MG, QMO
     Dates: start: 20040209, end: 20040308
  4. FASLODEX [Concomitant]
     Indication: BREAST CANCER
     Dosage: 250 MG, QMO
     Dates: start: 20021213
  5. PROZAC [Concomitant]
     Indication: DEPRESSION
     Dosage: 10 MG, QD
  6. VALIUM [Concomitant]
     Indication: SLEEP DISORDER
     Dosage: UNK, PRN
  7. TYLENOL W/ CODEINE NO. 3 [Concomitant]
     Indication: PAIN
     Dosage: UNK, PRN
     Dates: start: 20010201
  8. SYNTHROID [Concomitant]
     Indication: HYPOTHYROIDISM
     Dosage: .15 MG, QD
  9. ZANTAC [Concomitant]
     Dosage: 150 MG, BID
     Dates: start: 20030829
  10. IRON [Concomitant]
     Indication: ANAEMIA
     Dosage: UNK, TID
     Dates: start: 20010201
  11. EPOGEN [Concomitant]
     Dosage: 40000 UNK, QW2
     Dates: start: 20010201
  12. DEPAKOTE [Concomitant]
     Indication: DEPRESSION
     Dosage: 1000 MG, UNK
  13. DURAGESIC [Concomitant]
     Indication: PAIN
     Dosage: 25 UNK, Q72H
     Dates: start: 20030516

REACTIONS (6)
  - CONFUSIONAL STATE [None]
  - DISORIENTATION [None]
  - DIZZINESS [None]
  - FATIGUE [None]
  - HALLUCINATION [None]
  - INCONTINENCE [None]
